FAERS Safety Report 11052090 (Version 2)
Quarter: 2015Q3

REPORT INFORMATION
  Report Type: Report from Study
  Country: US (occurrence: US)
  Receive Date: 20150421
  Receipt Date: 20150817
  Transmission Date: 20151125
  Serious: Yes (Hospitalization)
  Sender: FDA-Public Use
  Company Number: US-GILEAD-2015-0149563

PATIENT
  Age: 62 Year
  Sex: Female

DRUGS (14)
  1. AMBRISENTAN [Suspect]
     Active Substance: AMBRISENTAN
     Indication: PULMONARY ARTERIAL HYPERTENSION
     Dosage: 10 MG, QD
     Route: 065
     Dates: start: 20141205
  2. LASIX [Concomitant]
     Active Substance: FUROSEMIDE
  3. TYVASO [Suspect]
     Active Substance: TREPROSTINIL
     Indication: PRODUCT USED FOR UNKNOWN INDICATION
     Route: 065
  4. ZOLOFT [Concomitant]
     Active Substance: SERTRALINE HYDROCHLORIDE
  5. WELLBUTRIN [Concomitant]
     Active Substance: BUPROPION HYDROCHLORIDE
  6. IPRATROPIUM [Concomitant]
     Active Substance: IPRATROPIUM
  7. RISPERIDONE. [Concomitant]
     Active Substance: RISPERIDONE
  8. NEURONTIN [Concomitant]
     Active Substance: GABAPENTIN
  9. ALBUTEROL                          /00139501/ [Concomitant]
     Active Substance: ALBUTEROL
  10. ENALAPRIL [Concomitant]
     Active Substance: ENALAPRIL
  11. GLIPIZIDE. [Concomitant]
     Active Substance: GLIPIZIDE
  12. IRON [Concomitant]
     Active Substance: IRON
  13. SILDENAFIL. [Suspect]
     Active Substance: SILDENAFIL
     Indication: PRODUCT USED FOR UNKNOWN INDICATION
     Route: 065
  14. NEXIUM [Concomitant]
     Active Substance: ESOMEPRAZOLE MAGNESIUM

REACTIONS (1)
  - Respiratory tract infection viral [Unknown]

NARRATIVE: CASE EVENT DATE: 20150411
